FAERS Safety Report 7800805-0 (Version None)
Quarter: 2011Q4

REPORT INFORMATION
  Report Type: 
  Country: None (occurrence: None)
  Receive Date: 20111006
  Receipt Date: 20110921
  Transmission Date: 20120403
  Serious: Yes (Life-Threatening, Other)
  Sender: FDA-Public Use
  Company Number: JP-BAYER-2011-086710

PATIENT
  Age: 82 Year
  Sex: Male

DRUGS (4)
  1. KAMAG G [Suspect]
     Dosage: UNK
     Route: 048
  2. ASPIRIN [Suspect]
     Dosage: 100 MG, QD
     Route: 048
     Dates: end: 20110915
  3. PROCYLIN [Suspect]
     Dosage: UNK
     Route: 048
  4. NICARDIPINE HCL [Suspect]
     Dosage: UNK
     Route: 065

REACTIONS (1)
  - HYPOGLYCAEMIC UNCONSCIOUSNESS [None]
